FAERS Safety Report 8608608-4 (Version None)
Quarter: 2012Q3

REPORT INFORMATION
  Report Type: 
  Country: None (occurrence: None)
  Receive Date: 20120821
  Receipt Date: 20120321
  Transmission Date: 20120928
  Serious: No
  Sender: FDA-Public Use
  Company Number: US-ASTELLAS-2012US002593

PATIENT
  Age: 2 Year
  Sex: Female

DRUGS (1)
  1. AMBISOME [Suspect]
     Indication: PRODUCT USED FOR UNKNOWN INDICATION
     Dosage: 65 MG, UID/QD
     Route: 042
     Dates: start: 20120228

REACTIONS (1)
  - BLOOD TRIGLYCERIDES INCREASED [None]
